FAERS Safety Report 8360520-4 (Version None)
Quarter: 2012Q2

REPORT INFORMATION
  Report Type: 
  Country: None (occurrence: None)
  Receive Date: 20120515
  Receipt Date: 20120502
  Transmission Date: 20120825
  Serious: Yes (Other)
  Sender: FDA-Public Use
  Company Number: FR-ELI_LILLY_AND_COMPANY-FR201205000443

PATIENT
  Sex: Male

DRUGS (7)
  1. ZOFRAN [Concomitant]
     Indication: PREMEDICATION
     Dosage: UNK, DAY 1, 8+ 15 OF EACH CYCLE
  2. SOLU-MEDROL [Concomitant]
     Indication: PREMEDICATION
     Dosage: 40 MG, OTN DAY 1, 8 + 15 OF EACH CYCLE
  3. CARBOPLATIN [Concomitant]
     Indication: BLADDER TRANSITIONAL CELL CARCINOMA
     Dosage: UNK, DAY 1 OF EACH CYCLE
  4. PLAVIX [Concomitant]
  5. MICARDIS [Concomitant]
  6. ATORVASTATIN [Concomitant]
  7. GEMZAR [Suspect]
     Indication: BLADDER TRANSITIONAL CELL CARCINOMA
     Dosage: 1000 MG/M2, DAY 1,8 + 15 OF EACH 28 DAY CYCLE
     Route: 042
     Dates: start: 20111128

REACTIONS (1)
  - THROMBOCYTOSIS [None]
